FAERS Safety Report 12758532 (Version 4)
Quarter: 2016Q4

REPORT INFORMATION
  Report Type: Spontaneous
  Country: US (occurrence: US)
  Receive Date: 20160919
  Receipt Date: 20161220
  Transmission Date: 20170207
  Serious: Yes (Death, Other)
  Sender: FDA-Public Use
  Company Number: US-PFIZER INC-2016433432

PATIENT
  Age: 61 Year
  Sex: Male
  Weight: 73 kg

DRUGS (10)
  1. XALATAN [Suspect]
     Active Substance: LATANOPROST
     Indication: GLAUCOMA
     Dosage: ONE DROP IN BOTH EYES ONCE DAILY AT BEDTIME
     Route: 047
     Dates: start: 200904
  2. FUROSEMIDE. [Concomitant]
     Active Substance: FUROSEMIDE
  3. SPIRONOLACTONE. [Concomitant]
     Active Substance: SPIRONOLACTONE
  4. LANTUS [Concomitant]
     Active Substance: INSULIN GLARGINE
  5. XALATAN [Suspect]
     Active Substance: LATANOPROST
     Indication: PIGMENTARY GLAUCOMA
  6. OMEPRAZOLE. [Concomitant]
     Active Substance: OMEPRAZOLE
  7. FERROUS SULFATE. [Concomitant]
     Active Substance: FERROUS SULFATE
  8. CILOSTAZOL. [Concomitant]
     Active Substance: CILOSTAZOL
  9. LISINOPRIL. [Concomitant]
     Active Substance: LISINOPRIL
  10. VICODIN [Concomitant]
     Active Substance: ACETAMINOPHEN\HYDROCODONE BITARTRATE

REACTIONS (1)
  - Death [Fatal]

NARRATIVE: CASE EVENT DATE: 201608
